FAERS Safety Report 9531601 (Version 4)
Quarter: 2013Q4

REPORT INFORMATION
  Report Type: Spontaneous
  Country: JP (occurrence: JP)
  Receive Date: 20130918
  Receipt Date: 20131004
  Transmission Date: 20140711
  Serious: Yes (Death, Hospitalization)
  Sender: FDA-Public Use
  Company Number: JP-PFIZER INC-2013237062

PATIENT
  Age: 83 Year
  Sex: Male
  Weight: 41 kg

DRUGS (3)
  1. ZYVOX [Suspect]
     Indication: PNEUMONIA
     Dosage: 600 MG, DAILY
     Route: 042
     Dates: start: 20130812
  2. VANCOMYCIN [Suspect]
     Indication: PNEUMONIA
     Dosage: 500 MG, DAILY
     Route: 042
     Dates: start: 20130730, end: 20130811
  3. MEROPENEM [Concomitant]
     Indication: PNEUMONIA
     Dosage: 500 MG, UNK
     Route: 042
     Dates: start: 20130730

REACTIONS (3)
  - Cardiac failure [Fatal]
  - Platelet count decreased [Not Recovered/Not Resolved]
  - Drug ineffective [Unknown]
